FAERS Safety Report 7388438-4 (Version None)
Quarter: 2011Q2

REPORT INFORMATION
  Report Type: 
  Country: None (occurrence: None)
  Receive Date: 20110401
  Receipt Date: 20110322
  Transmission Date: 20111010
  Serious: Yes (Other)
  Sender: FDA-Public Use
  Company Number: FR-B.I. PHARMACEUTICALS,INC./RIDGEFIELD-2011-FF-00289FF

PATIENT
  Sex: Female
  Weight: 54 kg

DRUGS (4)
  1. VASTAREL [Concomitant]
     Dosage: 70 MG
     Route: 048
  2. PRADAXA [Suspect]
     Indication: THROMBOSIS PROPHYLAXIS
     Dosage: 150 MG
     Route: 048
     Dates: start: 20110310, end: 20110318
  3. ALEPSAL [Concomitant]
     Dosage: 115 MG
     Route: 048
  4. CELECTOL [Concomitant]
     Dosage: 200 MG
     Route: 048

REACTIONS (2)
  - VENOUS THROMBOSIS [None]
  - THROMBOPHLEBITIS SUPERFICIAL [None]
